FAERS Safety Report 26074006 (Version 4)
Quarter: 2025Q4

REPORT INFORMATION
  Report Type: Report from Study
  Country: EU (occurrence: EU)
  Receive Date: 20251121
  Receipt Date: 20251130
  Transmission Date: 20260118
  Serious: Yes (Hospitalization, Other)
  Sender: ABBVIE
  Company Number: EU-ABBVIE-6556418

PATIENT
  Age: 85 Year
  Sex: Male
  Weight: 56 kg

DRUGS (2)
  1. CARBIDOPA\LEVODOPA [Suspect]
     Active Substance: CARBIDOPA\LEVODOPA
     Indication: Parkinson^s disease
     Route: 050
     Dates: start: 20181128, end: 202511
  2. CARBIDOPA\LEVODOPA [Suspect]
     Active Substance: CARBIDOPA\LEVODOPA
     Route: 050
     Dates: start: 202511

REACTIONS (10)
  - Respiratory tract infection [Recovering/Resolving]
  - Intestinal obstruction [Recovered/Resolved]
  - Device issue [Unknown]
  - Oxygen saturation decreased [Recovering/Resolving]
  - Musculoskeletal stiffness [Recovered/Resolved]
  - Intentional dose omission [Unknown]
  - Seizure [Recovered/Resolved]
  - Device issue [Unknown]
  - Off label use [Unknown]
  - Incorrect route of product administration [Unknown]

NARRATIVE: CASE EVENT DATE: 20251117
